FAERS Safety Report 22100550 (Version 1)
Quarter: 2023Q1

REPORT INFORMATION
  Report Type: Spontaneous
  Country: CN (occurrence: None)
  Receive Date: 20230316
  Receipt Date: 20230316
  Transmission Date: 20230418
  Serious: Yes (Other)
  Sender: FDA-Public Use
  Company Number: 2023A057940

PATIENT
  Age: 20834 Day
  Sex: Female
  Weight: 61 kg

DRUGS (1)
  1. TICAGRELOR [Suspect]
     Active Substance: TICAGRELOR
     Indication: Angina unstable
     Route: 048
     Dates: start: 20230127, end: 20230127

REACTIONS (2)
  - Chest discomfort [Recovering/Resolving]
  - Breath holding [Recovering/Resolving]

NARRATIVE: CASE EVENT DATE: 20230127
